FAERS Safety Report 14907203 (Version 1)
Quarter: 2018Q2

REPORT INFORMATION
  Report Type: Report from Study
  Country: IT (occurrence: IT)
  Receive Date: 20180517
  Receipt Date: 20180517
  Transmission Date: 20180711
  Serious: Yes (Hospitalization)
  Sender: FDA-Public Use
  Company Number: IT-TEVA-771305ACC

PATIENT
  Age: 42 Year
  Sex: Male

DRUGS (4)
  1. DEPAKIN - 500 MG COMPRESSE GASTRORESISTENTI - SANOFI S.P.A. [Suspect]
     Active Substance: VALPROATE SODIUM
     Indication: INTENTIONAL SELF-INJURY
     Route: 048
  2. QUETIAPINE. [Suspect]
     Active Substance: QUETIAPINE
     Indication: INTENTIONAL SELF-INJURY
     Route: 048
  3. VALDORM - 30 MG CAPSULE - VALEAS SPA INDUSTRIA CHIMICA E FARMACEUTICA [Suspect]
     Active Substance: FLURAZEPAM HYDROCHLORIDE
     Indication: INTENTIONAL SELF-INJURY
     Route: 048
  4. RIVOTRIL [Suspect]
     Active Substance: CLONAZEPAM
     Indication: INTENTIONAL SELF-INJURY
     Route: 048

REACTIONS (4)
  - Drug abuse [Unknown]
  - Nausea [Unknown]
  - Intentional self-injury [Unknown]
  - Retching [Unknown]

NARRATIVE: CASE EVENT DATE: 20170420
